FAERS Safety Report 10783906 (Version 2)
Quarter: 2015Q1

REPORT INFORMATION
  Report Type: Spontaneous
  Country: BR (occurrence: BR)
  Receive Date: 20150210
  Receipt Date: 20150310
  Transmission Date: 20150721
  Serious: Yes (Hospitalization, Other)
  Sender: FDA-Public Use
  Company Number: PHHY2015BR015440

PATIENT
  Age: 87 Year
  Sex: Male
  Weight: 60 kg

DRUGS (4)
  1. EXELON PATCH [Suspect]
     Active Substance: RIVASTIGMINE
     Indication: DEMENTIA ALZHEIMER^S TYPE
     Dosage: 9.5 MG, QD (PATCH 18 MG / 10 CM DAILY)
     Route: 062
     Dates: start: 201308
  2. EFORTIL [Concomitant]
     Indication: HYPOTENSION
     Dosage: 1 DF, QD
     Route: 048
  3. VENLAFAXINE [Concomitant]
     Active Substance: VENLAFAXINE HYDROCHLORIDE
     Indication: DEPRESSION
     Dosage: 1 DF, QD
     Route: 048
  4. SYNTHROID [Concomitant]
     Active Substance: LEVOTHYROXINE SODIUM
     Indication: THYROID DISORDER
     Dosage: 1 DF, QD
     Route: 048

REACTIONS (8)
  - Blood sodium decreased [Recovered/Resolved]
  - Drug administration error [Unknown]
  - Diabetes mellitus [Recovered/Resolved]
  - Heart rate irregular [Recovered/Resolved]
  - Aggression [Recovered/Resolved]
  - Hypertension [Recovered/Resolved]
  - Product adhesion issue [Unknown]
  - Thyroid function test abnormal [Recovered/Resolved]

NARRATIVE: CASE EVENT DATE: 20150113
